FAERS Safety Report 6982420-4 (Version None)
Quarter: 2010Q3

REPORT INFORMATION
  Report Type: 
  Country: None (occurrence: None)
  Receive Date: 20100914
  Receipt Date: 20100105
  Transmission Date: 20110219
  Serious: Yes (Other)
  Sender: FDA-Public Use
  Company Number: US-PFIZER INC-2010002115

PATIENT
  Sex: Male
  Weight: 108.86 kg

DRUGS (3)
  1. LYRICA [Suspect]
     Indication: PAIN IN EXTREMITY
     Dosage: 75 MG, 2X/DAY
     Route: 048
     Dates: start: 20090601
  2. NOVOLIN 70/30 [Concomitant]
     Indication: DIABETES MELLITUS
     Dosage: UNK
  3. ACTOS [Concomitant]
     Indication: DIABETES MELLITUS
     Dosage: 25 MG, 2X/DAY

REACTIONS (1)
  - WEIGHT INCREASED [None]
